FAERS Safety Report 24318079 (Version 1)
Quarter: 2024Q3

REPORT INFORMATION
  Report Type: Spontaneous
  Country: ES (occurrence: ES)
  Receive Date: 20240913
  Receipt Date: 20240913
  Transmission Date: 20241017
  Serious: Yes (Death)
  Sender: NOVARTIS
  Company Number: ES-002147023-NVSC2021ES318478

PATIENT

DRUGS (1)
  1. KYMRIAH [Suspect]
     Active Substance: TISAGENLECLEUCEL
     Indication: Non-Hodgkin^s lymphoma
     Dosage: UNK
     Route: 065

REACTIONS (4)
  - Non-Hodgkin^s lymphoma recurrent [Fatal]
  - Non-Hodgkin^s lymphoma [Fatal]
  - Malignant neoplasm progression [Fatal]
  - Drug ineffective [Fatal]

NARRATIVE: CASE EVENT DATE: 20210624
